FAERS Safety Report 15474114 (Version 2)
Quarter: 2018Q4

REPORT INFORMATION
  Report Type: Spontaneous
  Country: IT (occurrence: IT)
  Receive Date: 20181008
  Receipt Date: 20181009
  Transmission Date: 20190205
  Serious: Yes (Disabling)
  Sender: FDA-Public Use
  Company Number: IT-MYLANLABS-2018M1073825

PATIENT
  Age: 45 Year
  Sex: Female

DRUGS (1)
  1. BACLOFENE MYLAN GENERICS 25 MG COMPRESSE [Suspect]
     Active Substance: BACLOFEN
     Indication: HYPERTONIA
     Dosage: 25 MG, QD
     Route: 048
     Dates: start: 20150122

REACTIONS (7)
  - Myoclonus [Recovering/Resolving]
  - Muscle contracture [Recovering/Resolving]
  - Agitation [Recovering/Resolving]
  - Pain [Recovering/Resolving]
  - Insomnia [Recovering/Resolving]
  - Drug ineffective [Recovering/Resolving]
  - Product substitution issue [Recovering/Resolving]

NARRATIVE: CASE EVENT DATE: 20180320
